FAERS Safety Report 14162233 (Version 2)
Quarter: 2018Q1

REPORT INFORMATION
  Report Type: Spontaneous
  Country: US (occurrence: US)
  Receive Date: 20171106
  Receipt Date: 20180130
  Transmission Date: 20180508
  Serious: Yes (Other)
  Sender: FDA-Public Use
  Company Number: PHEH2017US035477

PATIENT
  Sex: Female

DRUGS (1)
  1. GILENYA [Suspect]
     Active Substance: FINGOLIMOD HYDROCHLORIDE
     Indication: PRODUCT USED FOR UNKNOWN INDICATION
     Dosage: UNK
     Route: 065
     Dates: start: 20171023

REACTIONS (6)
  - Dizziness [Unknown]
  - Feeling abnormal [Unknown]
  - Headache [Unknown]
  - Epilepsy [Unknown]
  - Myocardial infarction [Unknown]
  - Body temperature increased [Unknown]
